FAERS Safety Report 6652308-7 (Version None)
Quarter: 2010Q1

REPORT INFORMATION
  Report Type: 
  Country: None (occurrence: None)
  Receive Date: 20100323
  Receipt Date: 20100309
  Transmission Date: 20100710
  Serious: Yes (Other)
  Sender: FDA-Public Use
  Company Number: 2010-00195

PATIENT
  Age: 67 Year
  Sex: Female
  Weight: 168 kg

DRUGS (3)
  1. LISINOPRIL [Suspect]
     Indication: HYPERTENSION
     Dosage: (2 IN 1 D)
  2. LISINOPRIL [Suspect]
     Indication: HYPERTENSION
     Dosage: (2 IN 1 D)
  3. METOPROLOL TARTRATE TABLETS 50 MG (TABLETS) [Concomitant]

REACTIONS (12)
  - AGITATION [None]
  - ANXIETY [None]
  - BLOOD PRESSURE INCREASED [None]
  - DISTURBANCE IN ATTENTION [None]
  - DIZZINESS [None]
  - DRUG INEFFECTIVE [None]
  - HEADACHE [None]
  - HEART RATE DECREASED [None]
  - HEART RATE INCREASED [None]
  - NERVOUSNESS [None]
  - PALPITATIONS [None]
  - VITREOUS FLOATERS [None]
